FAERS Safety Report 19288172 (Version 1)
Quarter: 2021Q2

REPORT INFORMATION
  Report Type: Report from Study
  Country: US (occurrence: US)
  Receive Date: 20210521
  Receipt Date: 20210521
  Transmission Date: 20210717
  Serious: Yes (Hospitalization, Other)
  Sender: FDA-Public Use
  Company Number: US-AMGEN-USACT2021076426

PATIENT
  Age: 65 Year
  Sex: Female
  Weight: 104.76 kg

DRUGS (3)
  1. TALIMOGENE LAHERPAREPVEC [Suspect]
     Active Substance: TALIMOGENE LAHERPAREPVEC
     Indication: RHABDOMYOSARCOMA
     Dosage: 2 MILLION PFU, Q2WK
     Route: 036
     Dates: start: 20210429
  2. TRABECTEDIN [Suspect]
     Active Substance: TRABECTEDIN
     Indication: RHABDOMYOSARCOMA
     Dosage: 2.2 MILLIGRAM, Q3WK
     Route: 042
     Dates: start: 20210415
  3. NIVOLUMAB [Suspect]
     Active Substance: NIVOLUMAB
     Indication: RHABDOMYOSARCOMA
     Dosage: 240 MILLIGRAM, Q3WK
     Route: 042

REACTIONS (1)
  - Renal failure [Not Recovered/Not Resolved]

NARRATIVE: CASE EVENT DATE: 20210516
